FAERS Safety Report 10738434 (Version 1)
Quarter: 2015Q1

REPORT INFORMATION
  Report Type: Spontaneous
  Country: TR (occurrence: TR)
  Receive Date: 20150126
  Receipt Date: 20150126
  Transmission Date: 20150721
  Serious: Yes (Hospitalization, Other)
  Sender: FDA-Public Use
  Company Number: TR-ACTAVIS-2015-00745

PATIENT
  Age: 44 Year
  Sex: Male

DRUGS (1)
  1. SILDENAFIL (UNKNOWN) [Suspect]
     Active Substance: SILDENAFIL
     Indication: PRODUCT USED FOR UNKNOWN INDICATION
     Dosage: 150 MG, SINGLE
     Route: 065

REACTIONS (2)
  - Intentional product misuse [Unknown]
  - Acute myocardial infarction [Recovered/Resolved]
